FAERS Safety Report 7341625-3 (Version None)
Quarter: 2011Q1

REPORT INFORMATION
  Report Type: 
  Country: None (occurrence: None)
  Receive Date: 20110228
  Receipt Date: 20110224
  Transmission Date: 20110831
  Serious: Yes (Death)
  Sender: FDA-Public Use
  Company Number: OSCN-NO-1009S-0239

PATIENT
  Age: 56 Year
  Sex: Male

DRUGS (1)
  1. OMNISCAN [Suspect]
     Indication: PRODUCT USED FOR UNKNOWN INDICATION
     Dosage: 12 ML, SINGLE DOSE, I.V.
     Route: 042
     Dates: start: 20100526, end: 20100526

REACTIONS (2)
  - AZOTAEMIA [None]
  - OLIGURIA [None]
